FAERS Safety Report 17560531 (Version 1)
Quarter: 2020Q1

REPORT INFORMATION
  Report Type: Spontaneous
  Country: IN (occurrence: IN)
  Receive Date: 20200319
  Receipt Date: 20200319
  Transmission Date: 20200409
  Serious: Yes (Other)
  Sender: FDA-Public Use
  Company Number: IN-UCBSA-2020010757

PATIENT

DRUGS (1)
  1. LEVETIRACETAM. [Suspect]
     Active Substance: LEVETIRACETAM
     Indication: EPILEPSY
     Dosage: UNK

REACTIONS (32)
  - Aggression [Unknown]
  - Tremor [Unknown]
  - Headache [Unknown]
  - Decreased appetite [Unknown]
  - Weight increased [Unknown]
  - Gait disturbance [Unknown]
  - Balance disorder [Unknown]
  - Depression [Unknown]
  - Disturbance in attention [Unknown]
  - Dysarthria [Unknown]
  - Alopecia [Unknown]
  - Acne [Unknown]
  - Anger [Unknown]
  - Anxiety [Unknown]
  - Diplopia [Unknown]
  - Hypercholesterolaemia [Unknown]
  - Asthenia [Unknown]
  - Menstruation irregular [Unknown]
  - Suicidal ideation [Unknown]
  - Insomnia [Unknown]
  - Somnolence [Unknown]
  - Pruritus [Unknown]
  - Gastritis [Unknown]
  - Constipation [Unknown]
  - Neuropathy peripheral [Unknown]
  - Agitation [Unknown]
  - Salivary hypersecretion [Unknown]
  - Vision blurred [Unknown]
  - Amnesia [Unknown]
  - Rash [Unknown]
  - Increased appetite [Unknown]
  - Gingival hypertrophy [Unknown]
